FAERS Safety Report 8234086-3 (Version None)
Quarter: 2012Q1

REPORT INFORMATION
  Report Type: 
  Country: None (occurrence: None)
  Receive Date: 20120326
  Receipt Date: 20120326
  Transmission Date: 20120608
  Serious: Yes (Life-Threatening)
  Sender: FDA-Public Use
  Company Number: None

PATIENT
  Age: 7 Year
  Sex: Female
  Weight: 20.865 kg

DRUGS (1)
  1. CEPHALEXIN [Suspect]
     Indication: SKIN INFECTION
     Dosage: 6 MLS
     Route: 048
     Dates: start: 20110621, end: 20110625

REACTIONS (7)
  - CHILLS [None]
  - LYMPHADENOPATHY [None]
  - RASH MACULAR [None]
  - DERMATITIS EXFOLIATIVE [None]
  - TEMPERATURE REGULATION DISORDER [None]
  - SKIN DISCOLOURATION [None]
  - PRURITUS GENERALISED [None]
